FAERS Safety Report 8579606-4 (Version None)
Quarter: 2012Q3

REPORT INFORMATION
  Report Type: 
  Country: None (occurrence: None)
  Receive Date: 20120808
  Receipt Date: 20120731
  Transmission Date: 20120928
  Serious: Yes (Death, Life-Threatening)
  Sender: FDA-Public Use
  Company Number: JP-BAYER-2012-030823

PATIENT
  Age: 62 Year
  Sex: Male
  Weight: 57 kg

DRUGS (12)
  1. NEXAVAR [Suspect]
     Indication: HEPATIC NEOPLASM MALIGNANT
     Dosage: DAILY DOSE 800 MG
     Route: 048
     Dates: start: 20120310, end: 20120320
  2. SILECE [Concomitant]
     Dosage: DAILY DOSE 1 MG
     Route: 048
     Dates: end: 20120523
  3. RISPERIDONE [Concomitant]
     Dosage: DAILY DOSE 1 MG
     Route: 048
     Dates: end: 20120523
  4. NEXAVAR [Suspect]
     Dosage: 200 MG, BID
     Route: 048
     Dates: start: 20120401, end: 20120501
  5. ZOMETA [Concomitant]
     Indication: METASTASES TO BONE
     Dosage: 400 MG, Q3WK
     Route: 042
     Dates: start: 20120313, end: 20120516
  6. FENTANYL CITRATE [Concomitant]
     Dosage: DAILY DOSE 6 MG
     Route: 062
     Dates: end: 20120523
  7. LYRICA [Concomitant]
     Dosage: DAILY DOSE 150 MG
     Route: 048
     Dates: end: 20120523
  8. LOXONIN [Concomitant]
     Dosage: DAILY DOSE 180 MG
     Route: 048
     Dates: end: 20120523
  9. NEXAVAR [Suspect]
     Dosage: 400 MG, QOD
     Dates: start: 20120428, end: 20120430
  10. LAMIVUDINE [Concomitant]
     Dosage: DAILY DOSE 100 MG
     Route: 048
     Dates: end: 20120523
  11. NEXAVAR [Suspect]
     Dosage: 200 MG, BID
     Dates: start: 20120329, end: 20120427
  12. HEPSERA [Concomitant]
     Dosage: DAILY DOSE 10 MG
     Route: 048
     Dates: end: 20120523

REACTIONS (6)
  - DECREASED APPETITE [None]
  - BONE MARROW FAILURE [None]
  - FATIGUE [None]
  - ACUTE RESPIRATORY DISTRESS SYNDROME [None]
  - DYSPNOEA [None]
  - DIARRHOEA [None]
